FAERS Safety Report 13903177 (Version 1)
Quarter: 2017Q3

REPORT INFORMATION
  Report Type: Spontaneous
  Country: DK (occurrence: DK)
  Receive Date: 20170824
  Receipt Date: 20170824
  Transmission Date: 20171127
  Serious: Yes (Death)
  Sender: FDA-Public Use
  Company Number: PHHY2017DK123362

PATIENT
  Age: 73 Year
  Sex: Male

DRUGS (11)
  1. KALEORID [Concomitant]
     Active Substance: POTASSIUM CHLORIDE
     Indication: MINERAL SUPPLEMENTATION
     Route: 048
  2. MELATONIN [Concomitant]
     Active Substance: MELATONIN
     Indication: SLEEP DISORDER
     Route: 065
  3. METRONIDAZOL ACTAVIS [Concomitant]
     Active Substance: METRONIDAZOLE
     Indication: INFECTION
     Route: 065
  4. PAMOL [Concomitant]
     Active Substance: ACETAMINOPHEN
     Indication: PAIN
     Route: 048
  5. QUETIAPIN [Concomitant]
     Active Substance: QUETIAPINE
     Indication: MENTAL DISORDER
     Route: 048
  6. IBUMETIN [Concomitant]
     Active Substance: IBUPROFEN
     Indication: PAIN
  7. LACTULOSE. [Concomitant]
     Active Substance: LACTULOSE
     Indication: CONSTIPATION
     Route: 048
  8. FRAGMIN [Concomitant]
     Active Substance: DALTEPARIN SODIUM
     Indication: ANTICOAGULANT THERAPY
     Route: 065
  9. PROMIXIN [Concomitant]
     Active Substance: COLISTIMETHATE SODIUM
     Indication: PNEUMONIA
     Route: 065
  10. HEXAMYCIN [Suspect]
     Active Substance: GENTAMICIN
     Indication: PNEUMONIA
     Dosage: DOSIS: 360 MG X 1, STYRKE: 40 MG/ML
     Route: 042
     Dates: start: 20170723, end: 20170727
  11. FUROSEMIDE. [Concomitant]
     Active Substance: FUROSEMIDE
     Indication: DIURETIC THERAPY
     Route: 065

REACTIONS (2)
  - Acute kidney injury [Fatal]
  - Multiple organ dysfunction syndrome [Fatal]

NARRATIVE: CASE EVENT DATE: 20170727
